FAERS Safety Report 5278517-X (Version None)
Quarter: 2007Q1

REPORT INFORMATION
  Report Type: 
  Country: None (occurrence: None)
  Receive Date: 20070322
  Receipt Date: 20070309
  Transmission Date: 20070707
  Serious: Yes (Hospitalization)
  Sender: FDA-Public Use
  Company Number: US019387

PATIENT
  Age: 77 Year
  Sex: Male
  Weight: 117.9352 kg

DRUGS (5)
  1. PROVIGIL [Suspect]
     Indication: SLEEP APNOEA SYNDROME
     Dosage: 200 MG QD ORAL
     Route: 048
     Dates: start: 20061215
  2. PROVIGIL [Suspect]
     Dosage: 100 MG QD ORAL
     Route: 048
     Dates: start: 20070101, end: 20070101
  3. DILTIAZEM [Concomitant]
  4. LISINOPRIL [Concomitant]
  5. LIPITOR [Concomitant]

REACTIONS (2)
  - FALL [None]
  - TRANSIENT ISCHAEMIC ATTACK [None]
